FAERS Safety Report 9234357 (Version 1)
Quarter: 2013Q2

REPORT INFORMATION
  Report Type: Spontaneous
  Country: FR (occurrence: FR)
  Receive Date: 20130416
  Receipt Date: 20130416
  Transmission Date: 20140414
  Serious: Yes (Other)
  Sender: FDA-Public Use
  Company Number: FR-ASTRAZENECA-2013SE23494

PATIENT
  Age: 57 Year
  Sex: Female

DRUGS (4)
  1. OMEPRAZOLE [Suspect]
  2. HYDROXYCHLOROQUINE [Concomitant]
     Indication: SYSTEMIC LUPUS ERYTHEMATOSUS
  3. MYCOPHENOLATE MOFETIL [Concomitant]
     Indication: SYSTEMIC LUPUS ERYTHEMATOSUS
  4. AZATHIOPRINE [Concomitant]
     Indication: SYSTEMIC LUPUS ERYTHEMATOSUS

REACTIONS (2)
  - Cutaneous lupus erythematosus [Unknown]
  - Bicytopenia [Unknown]
